FAERS Safety Report 5556239-5 (Version None)
Quarter: 2007Q4

REPORT INFORMATION
  Report Type: 
  Country: None (occurrence: None)
  Receive Date: 20071213
  Receipt Date: 20070831
  Transmission Date: 20080405
  Serious: No
  Sender: FDA-Public Use
  Company Number: US-AMGEN-KDL241547

PATIENT
  Sex: Female

DRUGS (2)
  1. ENBREL [Suspect]
     Indication: PSORIATIC ARTHROPATHY
     Route: 058
     Dates: start: 20070827
  2. ARAVA [Concomitant]
     Route: 048
     Dates: start: 20050101

REACTIONS (4)
  - FATIGUE [None]
  - HEADACHE [None]
  - NASAL CONGESTION [None]
  - THROAT IRRITATION [None]
